FAERS Safety Report 4390630-8 (Version None)
Quarter: 2004Q2

REPORT INFORMATION
  Report Type: 
  Country: None (occurrence: None)
  Receive Date: 20040628
  Receipt Date: 20040615
  Transmission Date: 20050107
  Serious: Yes (Life-Threatening)
  Sender: FDA-Public Use
  Company Number: 2004AP03158

PATIENT
  Age: 76 Year
  Sex: Female

DRUGS (11)
  1. XYLOCAINE [Suspect]
     Indication: INFILTRATION ANAESTHESIA
     Dosage: 25 MG DAILY
     Dates: start: 20040105, end: 20040107
  2. KAKKON-TO [Concomitant]
  3. KEISHIBUKURYOUGAN [Concomitant]
  4. DEPAS [Concomitant]
  5. HALCION [Concomitant]
  6. NORVASC [Concomitant]
  7. DICHLOTRIDE [Concomitant]
  8. MILTAX [Concomitant]
  9. HUSCODE [Concomitant]
  10. ACETAMINOPHEN [Concomitant]
  11. KAMAG [Concomitant]

REACTIONS (2)
  - CONVULSION [None]
  - SHOCK [None]
